FAERS Safety Report 8602894-2 (Version None)
Quarter: 2012Q3

REPORT INFORMATION
  Report Type: 
  Country: None (occurrence: None)
  Receive Date: 20120817
  Receipt Date: 20120809
  Transmission Date: 20120928
  Serious: Yes (Congenital Anomaly)
  Sender: FDA-Public Use
  Company Number: US-GLAXOSMITHKLINE-A0989923A

PATIENT
  Sex: Male

DRUGS (4)
  1. TOPAMAX [Concomitant]
  2. FOLIC ACID [Concomitant]
  3. PHENOBARBITAL TAB [Concomitant]
  4. PAXIL [Suspect]
     Indication: DEPRESSION
     Dosage: 40MG PER DAY
     Route: 064

REACTIONS (7)
  - ATRIAL SEPTAL DEFECT [None]
  - CONGENITAL ORAL MALFORMATION [None]
  - ANKYLOGLOSSIA CONGENITAL [None]
  - PATENT DUCTUS ARTERIOSUS [None]
  - RIGHT VENTRICLE OUTFLOW TRACT OBSTRUCTION [None]
  - FOETAL EXPOSURE DURING PREGNANCY [None]
  - XYY SYNDROME [None]
